FAERS Safety Report 4764571-8 (Version None)
Quarter: 2005Q3

REPORT INFORMATION
  Report Type: 
  Country: None (occurrence: None)
  Receive Date: 20050906
  Receipt Date: 20050826
  Transmission Date: 20060218
  Serious: Yes (Death, Hospitalization, Other)
  Sender: FDA-Public Use
  Company Number: 2005120722

PATIENT
  Age: 68 Year
  Sex: Male
  Weight: 79.3795 kg

DRUGS (1)
  1. LIPITOR [Suspect]
     Indication: BLOOD CHOLESTEROL INCREASED
     Dates: end: 20020101

REACTIONS (7)
  - ARTHRITIS [None]
  - BACK PAIN [None]
  - HALLUCINATION [None]
  - HEPATIC NEOPLASM MALIGNANT [None]
  - PAIN [None]
  - PANCREATIC CARCINOMA [None]
  - WEIGHT DECREASED [None]
